FAERS Safety Report 7076668-0 (Version None)
Quarter: 2010Q4

REPORT INFORMATION
  Report Type: 
  Country: None (occurrence: None)
  Receive Date: 20101101
  Receipt Date: 20101027
  Transmission Date: 20110411
  Serious: Yes (Other)
  Sender: FDA-Public Use
  Company Number: KR-PFIZER INC-2010130259

PATIENT
  Age: 66 Year
  Sex: Male

DRUGS (2)
  1. METHYLPREDNISOLONE [Suspect]
     Indication: ALLERGIC GRANULOMATOUS ANGIITIS
     Dosage: 125 MG PER DAY
  2. METHYLPREDNISOLONE [Suspect]
     Indication: ASTHMA

REACTIONS (1)
  - PERITONITIS [None]
